FAERS Safety Report 4468710-8 (Version None)
Quarter: 2004Q4

REPORT INFORMATION
  Report Type: 
  Country: None (occurrence: None)
  Receive Date: 20041007
  Receipt Date: 20040930
  Transmission Date: 20050328
  Serious: Yes (Hospitalization)
  Sender: FDA-Public Use
  Company Number: US-MERCK-0410USA00106

PATIENT
  Age: 65 Year
  Sex: Female

DRUGS (6)
  1. [THERAPY UNSPECIFIED] [Concomitant]
     Route: 065
  2. CLONAZEPAM [Concomitant]
     Route: 065
  3. PREMARIN [Concomitant]
     Route: 065
  4. SERZONE [Concomitant]
     Route: 065
  5. DEXOFEN [Concomitant]
     Route: 065
  6. VIOXX [Suspect]
     Indication: ARTHRITIS
     Route: 048
     Dates: start: 20010101, end: 20040601

REACTIONS (4)
  - ANGINA PECTORIS [None]
  - CHEST PAIN [None]
  - HEART RATE IRREGULAR [None]
  - PAIN IN EXTREMITY [None]
